FAERS Safety Report 8205272-3 (Version None)
Quarter: 2012Q1

REPORT INFORMATION
  Report Type: 
  Country: None (occurrence: None)
  Receive Date: 20120313
  Receipt Date: 20120229
  Transmission Date: 20120608
  Serious: Yes (Hospitalization, Other)
  Sender: FDA-Public Use
  Company Number: CA-ROCHE-GNE303079

PATIENT
  Sex: Male

DRUGS (4)
  1. OMALIZUMAB [Suspect]
     Dosage: FORM: NOT REPORTED
     Route: 058
     Dates: start: 20060510
  2. VENTOLIN [Concomitant]
     Indication: PRODUCT USED FOR UNKNOWN INDICATION
  3. OMALIZUMAB [Suspect]
     Indication: ASTHMA
     Dosage: FORM: NOT REPORTED
     Route: 058
     Dates: start: 20051005
  4. ERTAPENEM [Concomitant]
     Indication: PRODUCT USED FOR UNKNOWN INDICATION

REACTIONS (7)
  - HYPERSENSITIVITY [None]
  - BRONCHITIS [None]
  - PNEUMONIA [None]
  - SINUSITIS [None]
  - DYSPNOEA [None]
  - POLYP [None]
  - NASOPHARYNGITIS [None]
